FAERS Safety Report 5374705-2 (Version None)
Quarter: 2007Q2

REPORT INFORMATION
  Report Type: 
  Country: None (occurrence: None)
  Receive Date: 20070627
  Receipt Date: 20070627
  Transmission Date: 20071010
  Serious: No
  Sender: FDA-Public Use
  Company Number: None

PATIENT
  Age: 22 Year
  Sex: Male
  Weight: 57.8 kg

DRUGS (6)
  1. ISOVUE-300 [Suspect]
     Indication: COMPUTERISED TOMOGRAM
     Dosage: 130 ML IV
     Route: 042
     Dates: start: 20061221
  2. BARIUM [Suspect]
     Dates: start: 20061221
  3. OMEPRAZOLE [Concomitant]
  4. BACTRIM [Concomitant]
  5. DOCUSATE/SENNA [Concomitant]
  6. LACTULOSE [Concomitant]

REACTIONS (4)
  - NAUSEA [None]
  - ORBITAL OEDEMA [None]
  - URTICARIA [None]
  - VOMITING [None]
